FAERS Safety Report 14309026 (Version 1)
Quarter: 2017Q4

REPORT INFORMATION
  Report Type: Spontaneous
  Country: US (occurrence: US)
  Receive Date: 20171220
  Receipt Date: 20171220
  Transmission Date: 20180321
  Serious: Yes (Other)
  Sender: FDA-Public Use
  Company Number: US-BAYER-2017-243360

PATIENT
  Age: 56 Year
  Sex: Male

DRUGS (4)
  1. OCTREOTIDE. [Concomitant]
     Active Substance: OCTREOTIDE
     Indication: GASTROINTESTINAL HAEMORRHAGE
     Dosage: 100 ?G, BID
     Route: 058
  2. WARFARIN [Interacting]
     Active Substance: WARFARIN
  3. ACETYLSALICYLIC ACID({=100 MG) [Suspect]
     Active Substance: ASPIRIN
     Dosage: 81 MG, UNK
  4. OCTREOTIDE. [Concomitant]
     Active Substance: OCTREOTIDE
     Indication: GASTROINTESTINAL HAEMORRHAGE
     Dosage: 20 MG, UNK
     Route: 030

REACTIONS (3)
  - Contraindicated product administered [None]
  - Labelled drug-drug interaction medication error [None]
  - Gastrointestinal haemorrhage [None]
